FAERS Safety Report 25268803 (Version 1)
Quarter: 2025Q2

REPORT INFORMATION
  Report Type: Spontaneous
  Country: US (occurrence: None)
  Receive Date: 20250504
  Receipt Date: 20250504
  Transmission Date: 20250717
  Serious: Yes (Disabling, Other)
  Sender: FDA-CTU
  Company Number: None

PATIENT
  Age: 42 Year
  Sex: Female
  Weight: 85.95 kg

DRUGS (8)
  1. METOPROLOL [Suspect]
     Active Substance: METOPROLOL
     Indication: Ischaemic heart disease prophylaxis
     Dates: start: 20201224, end: 20250411
  2. METOPROLOL [Suspect]
     Active Substance: METOPROLOL
     Indication: Blood pressure increased
  3. METOPROLOL [Suspect]
     Active Substance: METOPROLOL
     Indication: Heart rate increased
  4. Furosmide as needed [Concomitant]
  5. CRESTOR [Concomitant]
     Active Substance: ROSUVASTATIN CALCIUM
  6. LEVOTHYROXINE [Concomitant]
     Active Substance: LEVOTHYROXINE
  7. INSULIN LISPRO [Concomitant]
     Active Substance: INSULIN LISPRO
  8. LANTUS [Concomitant]
     Active Substance: INSULIN GLARGINE

REACTIONS (4)
  - Nightmare [None]
  - Nocturia [None]
  - Urinary incontinence [None]
  - Insomnia [None]

NARRATIVE: CASE EVENT DATE: 20250411
